FAERS Safety Report 5616652-4 (Version None)
Quarter: 2008Q1

REPORT INFORMATION
  Report Type: 
  Country: None (occurrence: None)
  Receive Date: 20080204
  Receipt Date: 20080128
  Transmission Date: 20080703
  Serious: Yes (Death, Life-Threatening, Hospitalization)
  Sender: FDA-Public Use
  Company Number: 2008SP001728

PATIENT
  Age: 67 Year
  Sex: Female
  Weight: 52 kg

DRUGS (2)
  1. TEMOZOLOMIDE [Suspect]
     Indication: COLORECTAL CANCER
     Dosage: 215 MG; QD;
     Dates: start: 20071227, end: 20080121
  2. LOMOTIL [Concomitant]

REACTIONS (15)
  - ACIDOSIS [None]
  - ASTHENIA [None]
  - GENERAL PHYSICAL HEALTH DETERIORATION [None]
  - HAEMOGLOBIN DECREASED [None]
  - HEPATIC ENCEPHALOPATHY [None]
  - HYPOTENSION [None]
  - LEUKOPENIA [None]
  - MIOSIS [None]
  - NEUTROPENIA [None]
  - PYREXIA [None]
  - RASH [None]
  - SYNCOPE [None]
  - THROMBOCYTOPENIA [None]
  - UPPER GASTROINTESTINAL HAEMORRHAGE [None]
  - WHITE BLOOD CELL COUNT DECREASED [None]
